FAERS Safety Report 8203642-0 (Version None)
Quarter: 2012Q1

REPORT INFORMATION
  Report Type: 
  Country: None (occurrence: None)
  Receive Date: 20120313
  Receipt Date: 20120302
  Transmission Date: 20120608
  Serious: Yes (Other)
  Sender: FDA-Public Use
  Company Number: US-JNJCP-30000093870

PATIENT
  Sex: Female

DRUGS (1)
  1. NTG AGE INTEN LIP PLUMPING TRTMNT USA NTAILPUS [Suspect]
     Dosage: ONE TIME AROUND THE LIPS
     Route: 061

REACTIONS (2)
  - PHARYNGEAL OEDEMA [None]
  - APPLICATION SITE URTICARIA [None]
